FAERS Safety Report 4611805-6 (Version None)
Quarter: 2005Q1

REPORT INFORMATION
  Report Type: 
  Country: None (occurrence: None)
  Receive Date: 20050317
  Receipt Date: 20050307
  Transmission Date: 20050727
  Serious: Yes (Hospitalization, Disabling)
  Sender: FDA-Public Use
  Company Number: JP-ABBOTT-05P-087-0293194-00

PATIENT
  Age: 22 Year
  Sex: Female

DRUGS (16)
  1. CLARITHROMYCIN [Suspect]
     Indication: MYCOBACTERIUM AVIUM COMPLEX INFECTION
     Route: 048
     Dates: start: 20030205
  2. ZIDOVUDINE [Suspect]
     Indication: HIV INFECTION
     Route: 048
     Dates: start: 20030806, end: 20031118
  3. ZIDOVUDINE [Suspect]
     Route: 048
     Dates: start: 20021002, end: 20030214
  4. DIDANOSINE [Suspect]
     Indication: HIV INFECTION
     Route: 048
     Dates: start: 20030806, end: 20031118
  5. DIDANOSINE [Suspect]
     Route: 048
     Dates: start: 20021002, end: 20030214
  6. LAMIVUDINE [Suspect]
     Indication: HIV INFECTION
     Route: 048
     Dates: start: 20031119, end: 20040302
  7. STAVUDINE [Suspect]
     Indication: HIV INFECTION
     Route: 048
     Dates: start: 20031119, end: 20040302
  8. DIDANOSINE [Concomitant]
     Route: 048
     Dates: start: 20040303
  9. NELFINAVIR MESILATE [Concomitant]
     Indication: HIV INFECTION
     Route: 048
     Dates: start: 20030806, end: 20040127
  10. NELFINAVIR MESILATE [Concomitant]
     Route: 048
     Dates: start: 20040128, end: 20040302
  11. AZITHROMYCIN HYDRATE [Concomitant]
     Indication: MYCOBACTERIUM AVIUM COMPLEX INFECTION
     Route: 048
     Dates: start: 20030122, end: 20030204
  12. KALETRA [Concomitant]
     Indication: HIV INFECTION
     Route: 048
     Dates: start: 20021002
  13. ABACAVIR SULFATE [Concomitant]
     Indication: HIV INFECTION
     Route: 048
     Dates: start: 20040303
  14. BACTRIM [Concomitant]
     Indication: INFECTION PROPHYLAXIS
     Route: 048
     Dates: start: 20030401
  15. ETHAMBUTOL HCL [Concomitant]
     Indication: MYCOBACTERIUM AVIUM COMPLEX INFECTION
     Route: 048
     Dates: start: 20030401
  16. RIFABUTIN [Concomitant]
     Indication: MYCOBACTERIUM AVIUM COMPLEX INFECTION
     Route: 048
     Dates: start: 20030401

REACTIONS (2)
  - ANAEMIA [None]
  - LEUKOPENIA [None]
